FAERS Safety Report 4562352-1 (Version None)
Quarter: 2005Q1

REPORT INFORMATION
  Report Type: 
  Country: None (occurrence: None)
  Receive Date: 20050127
  Receipt Date: 20041111
  Transmission Date: 20050727
  Serious: Yes (Other)
  Sender: FDA-Public Use
  Company Number: US-BRISTOL-MYERS SQUIBB COMPANY-12766424

PATIENT
  Age: 72 Year
  Sex: Female

DRUGS (2)
  1. PARAPLATIN AQ [Suspect]
     Indication: ENDOMETRIAL CANCER
     Route: 042
     Dates: start: 20021127, end: 20040830
  2. TAXOTERE [Concomitant]

REACTIONS (3)
  - BLOOD PRESSURE DECREASED [None]
  - DYSPNOEA [None]
  - OXYGEN SATURATION DECREASED [None]
